FAERS Safety Report 7525110-1 (Version None)
Quarter: 2011Q2

REPORT INFORMATION
  Report Type: 
  Country: None (occurrence: None)
  Receive Date: 20110526
  Receipt Date: 20110513
  Transmission Date: 20111010
  Serious: Yes (Death, Life-Threatening, Hospitalization, Other)
  Sender: FDA-Public Use
  Company Number: 2011MA005872

PATIENT
  Age: 27 Year
  Sex: Female

DRUGS (9)
  1. TIZANIDINE HYDROCHLORIDE TABLETS, 4 MG (PUREPAC) [Suspect]
  2. AZITHROMYCIN [Concomitant]
  3. SUMATRIPTAN SUCCINATE [Concomitant]
  4. TRAZODONE HCL [Concomitant]
  5. FEXOFENADINE [Concomitant]
  6. IBUPROFEN [Concomitant]
  7. TRAMADOL HCL [Concomitant]
  8. BUPROPION HCL [Concomitant]
  9. ZOLPIDEM [Concomitant]

REACTIONS (11)
  - VENTRICULAR TACHYCARDIA [None]
  - ELECTROCARDIOGRAM QT PROLONGED [None]
  - SUDDEN DEATH [None]
  - LOSS OF CONSCIOUSNESS [None]
  - VENTRICULAR FIBRILLATION [None]
  - HYPOXIC-ISCHAEMIC ENCEPHALOPATHY [None]
  - BRAIN DEATH [None]
  - COMA [None]
  - CARDIAC ARREST [None]
  - BLOOD POTASSIUM DECREASED [None]
  - TORSADE DE POINTES [None]
